FAERS Safety Report 20778799 (Version 11)
Quarter: 2023Q4

REPORT INFORMATION
  Report Type: Report from Study
  Country: CA (occurrence: CA)
  Receive Date: 20220503
  Receipt Date: 20231122
  Transmission Date: 20240109
  Serious: Yes (Other)
  Sender: FDA-Public Use
  Company Number: CA-TAKEDA-2022TUS006397

PATIENT
  Age: 62 Year
  Sex: Female

DRUGS (10)
  1. VEDOLIZUMAB [Suspect]
     Active Substance: VEDOLIZUMAB
     Indication: Crohn^s disease
     Dosage: 300 MILLIGRAM
     Route: 042
     Dates: start: 20200714
  2. VEDOLIZUMAB [Suspect]
     Active Substance: VEDOLIZUMAB
     Dosage: 300 MILLIGRAM
     Route: 042
     Dates: start: 20220815
  3. VEDOLIZUMAB [Suspect]
     Active Substance: VEDOLIZUMAB
     Dosage: 300 MILLIGRAM
     Route: 042
  4. VEDOLIZUMAB [Suspect]
     Active Substance: VEDOLIZUMAB
     Dosage: 300 MILLIGRAM
     Route: 042
  5. VEDOLIZUMAB [Suspect]
     Active Substance: VEDOLIZUMAB
     Dosage: 300 MILLIGRAM
     Route: 042
  6. VEDOLIZUMAB [Suspect]
     Active Substance: VEDOLIZUMAB
     Dosage: 300 MILLIGRAM
     Route: 042
     Dates: start: 20231103
  7. CIPRALEX [Concomitant]
     Active Substance: ESCITALOPRAM OXALATE
     Dosage: 10 MILLIGRAM
  8. INDAPAMIDE\PERINDOPRIL [Concomitant]
     Active Substance: INDAPAMIDE\PERINDOPRIL
     Dosage: 4 MILLIGRAM
  9. PREDNISONE [Concomitant]
     Active Substance: PREDNISONE
     Dosage: 40 MILLIGRAM
     Route: 048
  10. MESALAMINE [Concomitant]
     Active Substance: MESALAMINE
     Dosage: UNK

REACTIONS (28)
  - Crohn^s disease [Unknown]
  - Haematochezia [Unknown]
  - Non-Hodgkin^s lymphoma [Unknown]
  - Nephrolithiasis [Unknown]
  - Clostridium difficile infection [Unknown]
  - Cytomegalovirus colitis [Unknown]
  - Renal cyst [Unknown]
  - COVID-19 [Unknown]
  - Malaise [Unknown]
  - Female genital tract fistula [Unknown]
  - Large intestine polyp [Unknown]
  - Chest discomfort [Unknown]
  - Diarrhoea [Unknown]
  - Vertigo [Unknown]
  - Abscess [Unknown]
  - Gastrointestinal viral infection [Unknown]
  - Product dose omission issue [Unknown]
  - Hepatic steatosis [Unknown]
  - Magnetic resonance imaging head abnormal [Unknown]
  - Chest pain [Unknown]
  - Lymphadenopathy [Unknown]
  - Pharyngitis [Unknown]
  - Back pain [Unknown]
  - Headache [Unknown]
  - Fatigue [Unknown]
  - Cough [Unknown]
  - Upper respiratory tract infection [Recovered/Resolved]
  - Influenza [Not Recovered/Not Resolved]

NARRATIVE: CASE EVENT DATE: 20231111
